FAERS Safety Report 8136405-5 (Version None)
Quarter: 2012Q1

REPORT INFORMATION
  Report Type: 
  Country: None (occurrence: None)
  Receive Date: 20120214
  Receipt Date: 20120209
  Transmission Date: 20120608
  Serious: Yes (Hospitalization)
  Sender: FDA-Public Use
  Company Number: US-B.I. PHARMACEUTICALS,INC./RIDGEFIELD-2012-BP-02596BP

PATIENT
  Sex: Female

DRUGS (5)
  1. AMIODARONE HCL [Concomitant]
     Indication: HYPERTENSION
     Dosage: 200 MG
     Route: 048
  2. PRADAXA [Suspect]
     Indication: ATRIAL FIBRILLATION
     Dosage: 300 MG
     Route: 048
     Dates: start: 20110401
  3. PLAVIX [Concomitant]
     Indication: ATRIAL FIBRILLATION
     Dosage: 75 MG
     Route: 048
     Dates: start: 20111215
  4. ALDACTONE [Concomitant]
     Indication: OEDEMA
     Dosage: 25 MG
     Route: 048
  5. COREG [Concomitant]
     Indication: HYPERTENSION
     Dosage: 50 MG
     Route: 048

REACTIONS (2)
  - STENT PLACEMENT [None]
  - CONTUSION [None]
